FAERS Safety Report 14403438 (Version 1)
Quarter: 2018Q1

REPORT INFORMATION
  Report Type: Spontaneous
  Country: US (occurrence: US)
  Receive Date: 20180116
  Receipt Date: 20180116
  Transmission Date: 20180509
  Serious: Yes (Other)
  Sender: FDA-Public Use
  Company Number: None

PATIENT
  Age: 75 Year
  Sex: Female
  Weight: 63.23 kg

DRUGS (2)
  1. OLMESARTAN [Suspect]
     Active Substance: OLMESARTAN
     Indication: LEFT VENTRICULAR FAILURE
     Route: 048
     Dates: start: 20170104, end: 20170505
  2. OLMESARTAN [Suspect]
     Active Substance: OLMESARTAN
     Indication: CARDIOMEGALY
     Route: 048
     Dates: start: 20170104, end: 20170505

REACTIONS (5)
  - Product substitution issue [None]
  - Cardiac flutter [None]
  - Feeling jittery [None]
  - Inability to afford medication [None]
  - Palpitations [None]

NARRATIVE: CASE EVENT DATE: 20170606
